FAERS Safety Report 12455466 (Version 1)
Quarter: 2016Q2

REPORT INFORMATION
  Report Type: Report from Study
  Country: US (occurrence: US)
  Receive Date: 20160610
  Receipt Date: 20160610
  Transmission Date: 20160815
  Serious: Yes (Death)
  Sender: FDA-Public Use
  Company Number: US-UCBSA-2016021827

PATIENT

DRUGS (2)
  1. LEVETIRACETAM. [Suspect]
     Active Substance: LEVETIRACETAM
     Indication: CONVULSION PROPHYLAXIS
     Dosage: UNKNOWN DOSE
  2. BUSULFAN. [Concomitant]
     Active Substance: BUSULFAN
     Indication: TRANSPLANT
     Dosage: UNKNOWN DOSE
     Route: 042

REACTIONS (1)
  - Death [Fatal]
